FAERS Safety Report 5734901-9 (Version None)
Quarter: 2008Q2

REPORT INFORMATION
  Report Type: 
  Country: None (occurrence: None)
  Receive Date: 20080512
  Receipt Date: 20080507
  Transmission Date: 20081010
  Serious: Yes (Other)
  Sender: FDA-Public Use
  Company Number: B0519737A

PATIENT
  Age: 37 Year
  Sex: Female

DRUGS (6)
  1. AUGMENTIN '125' [Suspect]
     Indication: DRUG USE FOR UNKNOWN INDICATION
     Dosage: 1.2G THREE TIMES PER DAY
     Route: 065
  2. ENOXAPARIN SODIUM [Concomitant]
     Route: 065
  3. ACETAMINOPHEN [Concomitant]
     Route: 065
  4. LOSEC MUPS [Concomitant]
     Route: 065
  5. DICLOFENAC [Concomitant]
     Route: 065
  6. MAXOLON [Concomitant]
     Route: 065

REACTIONS (4)
  - CHOKING SENSATION [None]
  - DYSARTHRIA [None]
  - EYE DISORDER [None]
  - PARAESTHESIA [None]
